FAERS Safety Report 6553819-5 (Version None)
Quarter: 2010Q1

REPORT INFORMATION
  Report Type: 
  Country: None (occurrence: None)
  Receive Date: 20100122
  Receipt Date: 20100106
  Transmission Date: 20100710
  Serious: Yes (Hospitalization)
  Sender: FDA-Public Use
  Company Number: 2009AC000161

PATIENT
  Age: 2 Month
  Sex: Female

DRUGS (23)
  1. DIGOXIN [Suspect]
     Dosage: 50 MCG; BID; PO
     Route: 048
     Dates: start: 19970901
  2. LABETALOL HCL [Concomitant]
  3. LASIX [Concomitant]
  4. ALDACTONE [Concomitant]
  5. CAPTOPRIL [Concomitant]
  6. CARVEDILOL [Concomitant]
  7. ENALAPRIL MALEATE [Concomitant]
  8. CARVEDILOL [Concomitant]
  9. COLACE [Concomitant]
  10. VICODIN [Concomitant]
  11. FERROUS SULFATE TAB [Concomitant]
  12. AMIODARONE HCL [Concomitant]
  13. MAGNESIUM [Concomitant]
  14. ASPIRIN [Concomitant]
  15. ACETAMINOPHEN AND HYDROCODONE BITARTRATE [Concomitant]
  16. CAPTOPRIL [Concomitant]
  17. FUROSEMIDE [Concomitant]
  18. AMPICILLIN [Concomitant]
  19. ROCEPHIN [Concomitant]
  20. CAPTOPRIL [Concomitant]
  21. FUROSEMIDE [Concomitant]
  22. ALDACTONE [Concomitant]
  23. RIBOFLAVIN TAB [Concomitant]

REACTIONS (16)
  - CARDIAC ARREST [None]
  - CIRCULATORY COLLAPSE [None]
  - CONGESTIVE CARDIOMYOPATHY [None]
  - FATIGUE [None]
  - HEPATIC FUNCTION ABNORMAL [None]
  - HYDROCEPHALUS [None]
  - HYPOGLYCAEMIA [None]
  - INBORN ERROR OF METABOLISM [None]
  - MENTAL STATUS CHANGES [None]
  - MITRAL VALVE INCOMPETENCE [None]
  - MULTIPLE INJURIES [None]
  - MYOCARDIAL INFARCTION [None]
  - MYOCARDITIS [None]
  - SINUS TACHYCARDIA [None]
  - TRICUSPID VALVE INCOMPETENCE [None]
  - VENTRICULAR FIBRILLATION [None]
